FAERS Safety Report 18099002 (Version 2)
Quarter: 2020Q3

REPORT INFORMATION
  Report Type: Report from Study
  Country: EG (occurrence: EG)
  Receive Date: 20200731
  Receipt Date: 20200804
  Transmission Date: 20201103
  Serious: Yes (Other)
  Sender: FDA-Public Use
  Company Number: NVSC2020EG213149

PATIENT
  Age: 38 Year
  Sex: Female

DRUGS (5)
  1. AFINITOR [Suspect]
     Active Substance: EVEROLIMUS
     Indication: BREAST CANCER
     Dosage: 1 DF, QD
     Route: 048
     Dates: start: 201909, end: 202005
  2. AFINITOR [Suspect]
     Active Substance: EVEROLIMUS
     Indication: METASTASES TO LUNG
  3. KISQALI [Suspect]
     Active Substance: RIBOCICLIB
     Indication: PRODUCT USED FOR UNKNOWN INDICATION
     Dosage: 200 MG, UNKNOWN
     Route: 065
     Dates: start: 20200725
  4. FASLODEX [Concomitant]
     Active Substance: FULVESTRANT
     Indication: PRODUCT USED FOR UNKNOWN INDICATION
     Dosage: UNK (250?STARTED WITH AFINITOR)(INGECTION EVERY MONTH STARTED BY INJECTION AT THE FIRST MONTH AND TH
     Route: 065
     Dates: start: 201909
  5. TENORMIN [Concomitant]
     Active Substance: ATENOLOL
     Indication: PRODUCT USED FOR UNKNOWN INDICATION
     Dosage: 1 DF, QD (STARTED BEFORE AFINITOR)
     Route: 065

REACTIONS (2)
  - Pulmonary oedema [Recovering/Resolving]
  - Neoplasm progression [Not Recovered/Not Resolved]

NARRATIVE: CASE EVENT DATE: 202005
